FAERS Safety Report 21933900 (Version 1)
Quarter: 2023Q1

REPORT INFORMATION
  Report Type: Spontaneous
  Country: US (occurrence: US)
  Receive Date: 20230201
  Receipt Date: 20230201
  Transmission Date: 20230417
  Serious: Yes (Hospitalization, Other)
  Sender: FDA-Public Use
  Company Number: US-CIPLA LTD.-2023US00371

PATIENT

DRUGS (1)
  1. WARFARIN [Suspect]
     Active Substance: WARFARIN
     Indication: Protein S deficiency
     Dosage: UNK
     Route: 065

REACTIONS (4)
  - Compartment syndrome [Recovering/Resolving]
  - Skin necrosis [Recovering/Resolving]
  - International normalised ratio increased [Recovering/Resolving]
  - Treatment noncompliance [Unknown]
